FAERS Safety Report 8989016 (Version 1)
Quarter: 2012Q4

REPORT INFORMATION
  Report Type: Spontaneous
  Country: US (occurrence: None)
  Receive Date: 20121224
  Receipt Date: 20121224
  Transmission Date: 20130627
  Serious: Yes (Life-Threatening, Hospitalization)
  Sender: FDA-Public Use
  Company Number: None

PATIENT
  Age: 64 Year
  Sex: Male
  Weight: 60.8 kg

DRUGS (1)
  1. ENZALUTAMIDE [Suspect]
     Dosage: MG EVERY DAY PO
     Route: 048
     Dates: start: 20121017, end: 20121022

REACTIONS (5)
  - Nausea [None]
  - Vomiting [None]
  - Hypotension [None]
  - Tachycardia [None]
  - Metabolic acidosis [None]
